FAERS Safety Report 5743373-X (Version None)
Quarter: 2008Q2

REPORT INFORMATION
  Report Type: 
  Country: None (occurrence: None)
  Receive Date: 20080520
  Receipt Date: 20080512
  Transmission Date: 20081010
  Serious: Yes (Other)
  Sender: FDA-Public Use
  Company Number: GB-RANBAXY-2008RR-15126

PATIENT

DRUGS (10)
  1. ASPIRIN [Suspect]
     Indication: PROPHYLAXIS
     Dosage: 75 MG, QD
     Dates: start: 19950306
  2. ATORVASTATIN CALCIUM [Suspect]
     Indication: BLOOD CHOLESTEROL INCREASED
     Dosage: 20 MG, QD
     Dates: start: 20070221
  3. EPOETIN BETA (RCH) [Suspect]
     Indication: ANAEMIA
     Dosage: 1 DF, UNK
     Dates: start: 20060114
  4. FERROUS SULPHATE 200MG TABLETS [Suspect]
     Indication: ANAEMIA
     Dosage: 200 MG, QD
     Dates: start: 20040224
  5. HYDROXOCOBALAMIN [Suspect]
     Dosage: 5 DF, UNK
     Dates: start: 20070221
  6. LANSOPRAZOLE [Suspect]
     Indication: PROPHYLAXIS AGAINST GASTROINTESTINAL ULCER
     Dosage: 30 MG, BID
     Dates: start: 20061228
  7. ACETAMINOPHEN [Suspect]
     Dosage: 2 DF, QID
     Dates: start: 20010501
  8. TAMSULOSIN RANBAXY 0.4MG CAPSULE A RILASCIO PROLONGATO [Suspect]
     Dosage: 400 UG, QD
     Dates: start: 20061120
  9. VALSARTAN [Suspect]
     Indication: HYPERTENSION
     Dosage: 40 MG, QD
     Dates: start: 20060403
  10. VENTOLIN [Suspect]
     Indication: ASTHMA
     Dosage: UNK
     Route: 055
     Dates: start: 20031117

REACTIONS (1)
  - IDIOPATHIC PULMONARY FIBROSIS [None]
